FAERS Safety Report 4751728-5 (Version None)
Quarter: 2005Q3

REPORT INFORMATION
  Report Type: 
  Country: None (occurrence: None)
  Receive Date: 20050824
  Receipt Date: 20050815
  Transmission Date: 20060218
  Serious: Yes (Hospitalization)
  Sender: FDA-Public Use
  Company Number: AU-SANOFI-SYNTHELABO-F01200501533

PATIENT
  Sex: Male
  Weight: 66 kg

DRUGS (2)
  1. OXALIPLATIN [Suspect]
     Indication: OESOPHAGEAL CARCINOMA
     Dosage: 110 MG
     Route: 042
     Dates: start: 20041230, end: 20041230
  2. FLUOROURACIL [Suspect]
     Route: 042
     Dates: start: 20041230, end: 20041230

REACTIONS (2)
  - OESOPHAGEAL STENOSIS [None]
  - WEIGHT INCREASED [None]
